FAERS Safety Report 9298673 (Version 1)
Quarter: 2013Q2

REPORT INFORMATION
  Report Type: Spontaneous
  Country: FR (occurrence: FR)
  Receive Date: 20130516
  Receipt Date: 20130516
  Transmission Date: 20140414
  Serious: Yes (Other)
  Sender: FDA-Public Use
  Company Number: FR-PW/020801/411

PATIENT
  Sex: Male

DRUGS (2)
  1. SUBUTEX [Suspect]
     Indication: DRUG DEPENDENCE
     Route: 064
     Dates: end: 20021114
  2. SUBUTEX [Suspect]
     Route: 063

REACTIONS (4)
  - Neonatal infection [Unknown]
  - Constipation [Unknown]
  - Foetal exposure during pregnancy [Recovered/Resolved]
  - Exposure during breast feeding [Recovered/Resolved]
